FAERS Safety Report 15802168 (Version 4)
Quarter: 2019Q2

REPORT INFORMATION
  Report Type: Report from Study
  Country: MX (occurrence: MX)
  Receive Date: 20190109
  Receipt Date: 20190517
  Transmission Date: 20190711
  Serious: Yes (Other)
  Sender: FDA-Public Use
  Company Number: PHHY2019MX002645

PATIENT
  Age: 50 Year
  Sex: Male
  Weight: 62 kg

DRUGS (5)
  1. MEKINIST [Suspect]
     Active Substance: TRAMETINIB DIMETHYL SULFOXIDE
     Dosage: 4 DF (0.5 MG), QD
     Route: 048
  2. TAFINLAR [Suspect]
     Active Substance: DABRAFENIB MESYLATE
     Dosage: 6 DF (50 MG), QD (3 IN THE MORNING AND 3 IN THE AFTERNOON)
     Route: 048
  3. TAFINLAR [Suspect]
     Active Substance: DABRAFENIB MESYLATE
     Indication: MALIGNANT MELANOMA
     Dosage: 6 DF, QD
     Route: 048
     Dates: start: 20181015
  4. MEKINIST [Suspect]
     Active Substance: TRAMETINIB DIMETHYL SULFOXIDE
     Indication: MALIGNANT MELANOMA
     Dosage: 4 DF, QD
     Route: 048
     Dates: start: 20181029
  5. MEKINIST [Suspect]
     Active Substance: TRAMETINIB DIMETHYL SULFOXIDE
     Dosage: 4 DF, QD
     Route: 048
     Dates: start: 20181029

REACTIONS (6)
  - Discomfort [Recovering/Resolving]
  - Uveitis [Recovering/Resolving]
  - Neoplasm malignant [Unknown]
  - Tumour pain [Unknown]
  - Tumour inflammation [Recovering/Resolving]
  - Weight decreased [Recovering/Resolving]

NARRATIVE: CASE EVENT DATE: 20190316
